FAERS Safety Report 4554886-0 (Version None)
Quarter: 2005Q1

REPORT INFORMATION
  Report Type: 
  Country: None (occurrence: None)
  Receive Date: 20050110
  Receipt Date: 20041221
  Transmission Date: 20050727
  Serious: Yes (Hospitalization, Other)
  Sender: FDA-Public Use
  Company Number: 601692

PATIENT
  Age: 8 Year
  Sex: Male

DRUGS (3)
  1. FEIBA VH IMMUNO [Suspect]
     Indication: EPISTAXIS
  2. FEIBA VH IMMUNO [Suspect]
     Indication: HAEMARTHROSIS
  3. ANTIBIOTICS (ANTIBIOTICS) [Concomitant]

REACTIONS (5)
  - ANAPHYLACTIC REACTION [None]
  - APPENDICITIS [None]
  - C-REACTIVE PROTEIN INCREASED [None]
  - MUSCLE HAEMORRHAGE [None]
  - RED BLOOD CELL SEDIMENTATION RATE INCREASED [None]
